FAERS Safety Report 8054826-6 (Version None)
Quarter: 2012Q1

REPORT INFORMATION
  Report Type: 
  Country: None (occurrence: None)
  Receive Date: 20120119
  Receipt Date: 20120117
  Transmission Date: 20120608
  Serious: No
  Sender: FDA-Public Use
  Company Number: US-PFIZER INC-2012014095

PATIENT
  Sex: Female
  Weight: 73.469 kg

DRUGS (4)
  1. NORVASC [Suspect]
     Dosage: UNK
  2. ALTACE [Suspect]
     Dosage: UNK
  3. BENICAR [Suspect]
     Dosage: UNK
  4. RAMIPRIL [Suspect]
     Dosage: UNK

REACTIONS (1)
  - WEIGHT DECREASED [None]
